FAERS Safety Report 15330467 (Version 1)
Quarter: 2018Q3

REPORT INFORMATION
  Report Type: Other
  Country: PL (occurrence: PL)
  Receive Date: 20180829
  Receipt Date: 20180829
  Transmission Date: 20181010
  Serious: Yes (Life-Threatening, Hospitalization, Disabling, Other)
  Sender: FDA-Public Use
  Company Number: PL-APOTEX-2018AP019342

PATIENT
  Age: 50 Year
  Sex: Female

DRUGS (13)
  1. CLARITHROMYCIN. [Suspect]
     Active Substance: CLARITHROMYCIN
     Indication: TINNITUS
     Dosage: TWO 10 DAY COURSES
     Route: 065
  2. POLSEN [Suspect]
     Active Substance: ZOLPIDEM TARTRATE
     Indication: DEPRESSION
     Dosage: 10 MG AT BEDTIME
     Route: 065
  3. ATORIS [Suspect]
     Active Substance: ATORVASTATIN CALCIUM
     Indication: SUICIDE ATTEMPT
     Dosage: UNK
     Route: 065
  4. TROSICAM [Suspect]
     Active Substance: MELOXICAM
     Indication: ARTHRALGIA
     Dosage: UNK
     Route: 065
  5. TRAMADOL. [Suspect]
     Active Substance: TRAMADOL
     Indication: ARTHRALGIA
     Route: 065
  6. CONCOR [Suspect]
     Active Substance: BISOPROLOL FUMARATE
     Route: 065
  7. DOXEPIN [Suspect]
     Active Substance: DOXEPIN
     Indication: AFFECTIVE DISORDER
     Dosage: 25 MG AT BEDTIME
     Route: 065
  8. ESCITALOPRAM [Suspect]
     Active Substance: ESCITALOPRAM OXALATE
     Indication: AFFECTIVE DISORDER
     Route: 065
  9. ESCITALOPRAM [Suspect]
     Active Substance: ESCITALOPRAM OXALATE
     Dosage: 10 MG, UNK
     Route: 065
  10. TRAMADOL. [Suspect]
     Active Substance: TRAMADOL
     Dosage: UNK
     Route: 065
  11. CONCOR [Suspect]
     Active Substance: BISOPROLOL FUMARATE
     Indication: SUICIDE ATTEMPT
     Route: 065
  12. SERTRALINE [Suspect]
     Active Substance: SERTRALINE HYDROCHLORIDE
     Indication: DEPRESSION
     Dosage: 50 MG IN THE MORNING
     Route: 065
  13. PERINDOPRIL [Suspect]
     Active Substance: PERINDOPRIL
     Indication: SUICIDE ATTEMPT
     Dosage: UNK
     Route: 065

REACTIONS (10)
  - Suicide attempt [Recovered/Resolved]
  - Affective disorder [Recovering/Resolving]
  - Intentional overdose [Unknown]
  - Loss of consciousness [Recovered/Resolved]
  - Impaired work ability [Recovered/Resolved]
  - Tinnitus [Recovered/Resolved]
  - Loss of personal independence in daily activities [Recovered/Resolved]
  - Overdose [Recovered/Resolved]
  - Insomnia [Recovering/Resolving]
  - Intentional product misuse [Recovering/Resolving]
